FAERS Safety Report 5398925-6 (Version None)
Quarter: 2007Q3

REPORT INFORMATION
  Report Type: 
  Country: None (occurrence: None)
  Receive Date: 20070724
  Receipt Date: 20070724
  Transmission Date: 20080115
  Serious: Yes (Hospitalization)
  Sender: FDA-Public Use
  Company Number: None

PATIENT
  Sex: Female
  Weight: 57.6 kg

DRUGS (3)
  1. CYTARABINE [Suspect]
     Dosage: 1127 MG
  2. DAUNORUBICIN HCL [Suspect]
     Dosage: 216 MG
  3. MYLOTARG [Suspect]
     Dosage: 9.7 MG

REACTIONS (9)
  - ALANINE AMINOTRANSFERASE INCREASED [None]
  - ASPARTATE AMINOTRANSFERASE INCREASED [None]
  - BLOOD CULTURE POSITIVE [None]
  - COMPUTERISED TOMOGRAM ABNORMAL [None]
  - FLUID OVERLOAD [None]
  - NEUTROPENIA [None]
  - PLEURAL EFFUSION [None]
  - TACHYCARDIA [None]
  - TRANSFUSION-RELATED ACUTE LUNG INJURY [None]
